FAERS Safety Report 7462147-5 (Version None)
Quarter: 2011Q2

REPORT INFORMATION
  Report Type: 
  Country: None (occurrence: None)
  Receive Date: 20110506
  Receipt Date: 20110422
  Transmission Date: 20111010
  Serious: Yes (Other)
  Sender: FDA-Public Use
  Company Number: US-BAYER-2010-003632

PATIENT
  Age: 25 Year
  Sex: Female
  Weight: 95 kg

DRUGS (9)
  1. AMBIEN [Concomitant]
     Dosage: 10 MG, QD
     Route: 048
  2. YAZ [Suspect]
     Indication: ACNE
     Dosage: UNK UNK, QD
     Route: 048
     Dates: start: 20070101, end: 20090101
  3. YAZ [Suspect]
     Indication: PREMENSTRUAL SYNDROME
  4. MULTI-VITAMINS [Concomitant]
     Dosage: UNK UNK, QD
     Route: 048
  5. IBUPROFEN [Concomitant]
     Dosage: 800 MG, PRN
  6. PROZAC [Concomitant]
     Dosage: 20 MG, QD
     Route: 048
  7. METFORMIN [Concomitant]
     Dosage: 500 MG, BID
     Route: 048
  8. DROSPIRENONE AND ETHINYL ESTRADIOL [Suspect]
     Indication: PREMENSTRUAL SYNDROME
  9. DROSPIRENONE AND ETHINYL ESTRADIOL [Suspect]
     Indication: ACNE
     Dosage: UNK UNK, QD
     Route: 048
     Dates: start: 20070101, end: 20090101

REACTIONS (7)
  - GASTROINTESTINAL INJURY [None]
  - PAIN [None]
  - DEEP VEIN THROMBOSIS [None]
  - DIARRHOEA [None]
  - GASTROINTESTINAL PAIN [None]
  - CONSTIPATION [None]
  - FLATULENCE [None]
